FAERS Safety Report 21685605 (Version 1)
Quarter: 2022Q4

REPORT INFORMATION
  Report Type: Spontaneous
  Country: DE (occurrence: DE)
  Receive Date: 20221206
  Receipt Date: 20221206
  Transmission Date: 20230112
  Serious: Yes (Hospitalization, Other)
  Sender: FDA-Public Use
  Company Number: None

PATIENT
  Age: 64 Year
  Sex: Male

DRUGS (13)
  1. SERTRALINE [Suspect]
     Active Substance: SERTRALINE HYDROCHLORIDE
     Indication: Product used for unknown indication
     Dosage: 50 MG, 1-0-0-0, TABLET
  2. DICLOFENAC [Suspect]
     Active Substance: DICLOFENAC
     Indication: Product used for unknown indication
     Dosage: 75 MG, IF NECESSARY, CAPSULE
  3. LEVOFLOXACIN [Suspect]
     Active Substance: LEVOFLOXACIN
     Indication: Product used for unknown indication
     Dosage: 250 MG, 1-0-1-0, TABLET
     Dates: start: 20210416
  4. LORAZEPAM [Concomitant]
     Active Substance: LORAZEPAM
     Dosage: 1 MG, IF NECESSARY, ORODISPERSIBLE TABLET
  5. FENTANYL [Concomitant]
     Active Substance: FENTANYL
     Dosage: 11.56 MG, CHANGE EVERY 3 DAYS, TRANSDERMAL PATCH
  6. ASPIRIN [Concomitant]
     Active Substance: ASPIRIN
     Dosage: 100 MG, 0-1-0-0, TABLET
  7. METOPROLOL [Concomitant]
     Active Substance: METOPROLOL
     Dosage: 47.5 MG, 1-0-0-0, PROLONGED-RELEASE TABLET
  8. AMLODIPINE BESYLATE [Concomitant]
     Active Substance: AMLODIPINE BESYLATE
     Dosage: 1-0-0-0, TABLET
  9. PREGABALIN [Concomitant]
     Active Substance: PREGABALIN
     Dosage: 50 MG, IF NECESSARY, CAPSULE
  10. PANTOPRAZOLE SODIUM [Concomitant]
     Active Substance: PANTOPRAZOLE SODIUM
     Dosage: 40 MG, 1-0-1-0, TABLET
  11. CANDESARTAN [Concomitant]
     Active Substance: CANDESARTAN
     Dosage: 16 MG, 1-0-1-0, TABLET
  12. PSYLLIUM SEEDS [Concomitant]
     Dosage: IF NECESSARY, POWDER
     Route: 048
  13. AMLODIPINE BESYLATE [Concomitant]
     Active Substance: AMLODIPINE BESYLATE
     Dosage: 5 MG, 1-0-0-0, TABLET
     Route: 048

REACTIONS (5)
  - Haematochezia [Unknown]
  - Upper gastrointestinal haemorrhage [Unknown]
  - Oesophageal candidiasis [Unknown]
  - Oesophagitis ulcerative [Unknown]
  - Gastrooesophageal reflux disease [Unknown]

NARRATIVE: CASE EVENT DATE: 20210417
